FAERS Safety Report 5607584-6 (Version None)
Quarter: 2008Q1

REPORT INFORMATION
  Report Type: 
  Country: None (occurrence: None)
  Receive Date: 20080130
  Receipt Date: 20080123
  Transmission Date: 20080703
  Serious: Yes (Hospitalization, Other)
  Sender: FDA-Public Use
  Company Number: PHHO2007US01066

PATIENT
  Age: 5 Year
  Sex: Female
  Weight: 18.3 kg

DRUGS (11)
  1. DESFERAL [Suspect]
     Indication: BLOOD IRON INCREASED
     Dosage: UNK, QD
     Route: 048
     Dates: start: 20060217, end: 20060724
  2. DESFERAL [Suspect]
     Dosage: NO TREATMENT
     Dates: start: 20060725
  3. DESFERAL [Suspect]
     Dosage: UNK, QD
     Route: 048
     Dates: start: 20060725, end: 20070703
  4. DESFERAL [Suspect]
     Dosage: NO TREATMENT
     Dates: start: 20070704, end: 20070717
  5. DESFERAL [Suspect]
     Dosage: 375 MG, QD
     Route: 048
     Dates: start: 20070718, end: 20070925
  6. DESFERAL [Suspect]
     Dosage: NO TREATMENT
     Dates: start: 20071218, end: 20071219
  7. DESFERAL [Suspect]
     Dosage: UNKNOWN
     Route: 048
     Dates: start: 20071220
  8. DESFERAL [Suspect]
     Dosage: UNKOWN
     Route: 048
     Dates: end: 20071116
  9. DESFERAL [Suspect]
     Dosage: NO TREATMENT
     Dates: start: 20070926
  10. DESFERAL [Suspect]
     Dosage: NO TREATMENT
     Dates: start: 20071117, end: 20071119
  11. DESFERAL [Suspect]
     Dosage: UNKNOWN
     Route: 048
     Dates: start: 20071120, end: 20071217

REACTIONS (14)
  - ABDOMINAL PAIN [None]
  - BACTERIA URINE [None]
  - BLOOD CREATININE INCREASED [None]
  - CHILLS [None]
  - DEHYDRATION [None]
  - ESCHERICHIA URINARY TRACT INFECTION [None]
  - LEUKOCYTOSIS [None]
  - NAUSEA [None]
  - PYELONEPHRITIS [None]
  - PYREXIA [None]
  - TACHYCARDIA [None]
  - TRANSAMINASES INCREASED [None]
  - URINARY TRACT INFECTION [None]
  - VOMITING [None]
